FAERS Safety Report 9378161 (Version 3)
Quarter: 2013Q4

REPORT INFORMATION
  Report Type: Spontaneous
  Country: GB (occurrence: GB)
  Receive Date: 20130701
  Receipt Date: 20131001
  Transmission Date: 20140711
  Serious: Yes (Hospitalization)
  Sender: FDA-Public Use
  Company Number: GB-GLAXOSMITHKLINE-B0902845A

PATIENT
  Age: 59 Year
  Sex: Male

DRUGS (3)
  1. AVANDIA [Suspect]
     Indication: DIABETES MELLITUS
     Route: 065
  2. AVANDAMET [Suspect]
     Indication: DIABETES MELLITUS
     Route: 048
     Dates: start: 20060517
  3. METFORMIN [Concomitant]
     Indication: DIABETES MELLITUS
     Dosage: 1000MG TWICE PER DAY
     Route: 048
     Dates: start: 20100909

REACTIONS (3)
  - Transient ischaemic attack [Unknown]
  - Cerebral infarction [Unknown]
  - Carotid artery stenosis [Unknown]
